FAERS Safety Report 7419009-9 (Version None)
Quarter: 2011Q2

REPORT INFORMATION
  Report Type: 
  Country: None (occurrence: None)
  Receive Date: 20110415
  Receipt Date: 20110405
  Transmission Date: 20111010
  Serious: Yes (Other)
  Sender: FDA-Public Use
  Company Number: US-AMGEN-USASP2011018087

PATIENT
  Age: 24 Year
  Sex: Female

DRUGS (1)
  1. ENBREL [Suspect]
     Indication: ARTHRITIS
     Dosage: 50 MG, 2 TIMES/WK
     Dates: start: 20101007

REACTIONS (17)
  - VOMITING [None]
  - NAUSEA [None]
  - CHILLS [None]
  - GASTRITIS [None]
  - FATIGUE [None]
  - OESOPHAGEAL IRRITATION [None]
  - DEHYDRATION [None]
  - CONFUSIONAL STATE [None]
  - PERFORMANCE STATUS DECREASED [None]
  - GASTROINTESTINAL INFLAMMATION [None]
  - DECREASED APPETITE [None]
  - ARTHRALGIA [None]
  - ORAL CANDIDIASIS [None]
  - ANXIETY [None]
  - ASTHENIA [None]
  - DYSPNOEA [None]
  - CELLULITIS [None]
